FAERS Safety Report 7319523-0 (Version None)
Quarter: 2011Q1

REPORT INFORMATION
  Report Type: 
  Country: None (occurrence: None)
  Receive Date: 20110228
  Receipt Date: 20100429
  Transmission Date: 20110831
  Serious: Yes (Other)
  Sender: FDA-Public Use
  Company Number: A0857311A

PATIENT
  Age: 21 Year
  Sex: Male

DRUGS (1)
  1. LAMICTAL [Suspect]
     Dosage: 500MG TWICE PER DAY
     Route: 048
     Dates: start: 20090101

REACTIONS (1)
  - CONVULSION [None]
